FAERS Safety Report 16541551 (Version 2)
Quarter: 2019Q3

REPORT INFORMATION
  Report Type: Spontaneous
  Country: US (occurrence: US)
  Receive Date: 20190708
  Receipt Date: 20190715
  Transmission Date: 20191004
  Serious: Yes (Life-Threatening, Hospitalization, Other)
  Sender: FDA-Public Use
  Company Number: US-PFIZER INC-2019285545

PATIENT
  Age: 60 Year
  Sex: Male

DRUGS (5)
  1. VANCOMYCIN HCL [Suspect]
     Active Substance: VANCOMYCIN HYDROCHLORIDE
     Indication: EVIDENCE BASED TREATMENT
     Dosage: UNK (FOR 4-6 WEEKS, PERIPHERALLY INSERTED CENTRAL CATHETER LINE PLACEMENT, INFUSIONS )
     Route: 042
  2. VANCOMYCIN HCL [Suspect]
     Active Substance: VANCOMYCIN HYDROCHLORIDE
     Indication: STAPHYLOCOCCAL INFECTION
  3. CEFEPIME HCL [Suspect]
     Active Substance: CEFEPIME HYDROCHLORIDE
     Indication: EVIDENCE BASED TREATMENT
     Dosage: UNK (FOR 4-6 WEEKS, PERIPHERALLY INSERTED CENTRAL CATHETER LINE PLACEMENT, INFUSIONS)
     Route: 042
  4. TOBRAMYCIN. [Concomitant]
     Active Substance: TOBRAMYCIN
     Indication: DEVICE RELATED INFECTION
     Dosage: 9 DF, UNK (AN ANTIBIOTIC SPACER CONTAINING 3 BATCHES OF CEMENT, 9 G OF VANCOMYCIN, AND 9 VIALS OF TO
  5. VANCOMYCIN HCL [Suspect]
     Active Substance: VANCOMYCIN HYDROCHLORIDE
     Indication: DEVICE RELATED INFECTION
     Dosage: 9 G, UNK (ANTIBIOTIC SPACER CONTAINING 3 BATCHES OF CEMENT, 9 G OF VANCOMYCIN, AND 9 VIALS OF TOBUNK

REACTIONS (1)
  - Drug reaction with eosinophilia and systemic symptoms [Recovered/Resolved]
